FAERS Safety Report 12840349 (Version 3)
Quarter: 2017Q2

REPORT INFORMATION
  Report Type: Spontaneous
  Country: US (occurrence: US)
  Receive Date: 20161012
  Receipt Date: 20170620
  Transmission Date: 20170830
  Serious: No
  Sender: FDA-Public Use
  Company Number: US-LUNDBECK-DKLU2019886

PATIENT
  Age: 81 Year
  Sex: Male

DRUGS (4)
  1. JUBLIA [Concomitant]
     Active Substance: EFINACONAZOLE
     Indication: PRODUCT USED FOR UNKNOWN INDICATION
     Route: 065
  2. NORTHERA [Suspect]
     Active Substance: DROXIDOPA
     Indication: PRODUCT USED FOR UNKNOWN INDICATION
     Dosage: SCHEDULE C FIXED DOSE/ TITRATION COMPLETE
     Route: 065
     Dates: start: 20160918, end: 201610
  3. SINEMET [Suspect]
     Active Substance: CARBIDOPA\LEVODOPA
     Indication: PARKINSON^S DISEASE
     Dosage: 25/100
     Route: 065
  4. CINNAMON. [Suspect]
     Active Substance: CINNAMON
     Indication: BLOOD PRESSURE MANAGEMENT
     Route: 065

REACTIONS (10)
  - Mobility decreased [Recovering/Resolving]
  - Blood pressure fluctuation [Unknown]
  - Fall [Unknown]
  - Dizziness [Unknown]
  - Hypersomnia [Recovering/Resolving]
  - Neuropathy peripheral [Unknown]
  - Poor quality sleep [Unknown]
  - Asthenia [Unknown]
  - Hypotension [Unknown]
  - Fatigue [Unknown]

NARRATIVE: CASE EVENT DATE: 201609
